FAERS Safety Report 9495861 (Version 1)
Quarter: 2013Q3

REPORT INFORMATION
  Report Type: Spontaneous
  Country: US (occurrence: US)
  Receive Date: 20130903
  Receipt Date: 20130903
  Transmission Date: 20140515
  Serious: No
  Sender: FDA-Public Use
  Company Number: US-TEVA-429510USA

PATIENT
  Sex: Female
  Weight: 53.57 kg

DRUGS (1)
  1. PARAGARD 380A [Suspect]
     Indication: DEVICE EXPULSION
     Route: 015
     Dates: start: 20130606

REACTIONS (1)
  - Device expulsion [Recovered/Resolved]
